FAERS Safety Report 6405807-7 (Version None)
Quarter: 2009Q4

REPORT INFORMATION
  Report Type: 
  Country: None (occurrence: None)
  Receive Date: 20091016
  Receipt Date: 20091016
  Transmission Date: 20100525
  Serious: Yes (Other)
  Sender: FDA-Public Use
  Company Number: None

PATIENT

DRUGS (1)
  1. BOTOX [Suspect]

REACTIONS (8)
  - DIZZINESS [None]
  - HEADACHE [None]
  - MIGRAINE [None]
  - MOVEMENT DISORDER [None]
  - MYALGIA [None]
  - NECK PAIN [None]
  - PAIN [None]
  - PRODUCT QUALITY ISSUE [None]
